FAERS Safety Report 12656253 (Version 1)
Quarter: 2016Q3

REPORT INFORMATION
  Report Type: Spontaneous
  Country: US (occurrence: US)
  Receive Date: 20160816
  Receipt Date: 20160816
  Transmission Date: 20161109
  Serious: Yes (Other)
  Sender: FDA-Public Use
  Company Number: ALCN2016US005658

PATIENT
  Age: 54 Year
  Sex: Male

DRUGS (2)
  1. PREDNISOLONE ACETATE. [Suspect]
     Active Substance: PREDNISOLONE ACETATE
     Indication: POSTOPERATIVE CARE
     Dosage: 1 GTT, QID
     Route: 047
  2. DORZOLAMIDE,TIMOLOL [Suspect]
     Active Substance: DORZOLAMIDE\TIMOLOL
     Indication: INTRAOCULAR PRESSURE INCREASED
     Route: 047

REACTIONS (2)
  - Intraocular pressure increased [Recovered/Resolved]
  - Drug ineffective [Recovered/Resolved]
